FAERS Safety Report 23774169 (Version 1)
Quarter: 2024Q2

REPORT INFORMATION
  Report Type: Spontaneous
  Country: CN (occurrence: CN)
  Receive Date: 20240423
  Receipt Date: 20240423
  Transmission Date: 20240716
  Serious: Yes (Other)
  Sender: FDA-Public Use
  Company Number: CN-PFIZER INC-PV202400051767

PATIENT
  Age: 34 Year
  Sex: Female

DRUGS (9)
  1. FLUCONAZOLE [Suspect]
     Active Substance: FLUCONAZOLE
     Indication: Antifungal treatment
     Dosage: 0.4 G, QD
     Route: 041
     Dates: start: 20210614, end: 20210626
  2. THALIDOMIDE [Suspect]
     Active Substance: THALIDOMIDE
     Indication: Pruritus
     Dosage: 100 MG, QN
     Route: 048
     Dates: start: 20210607, end: 20210620
  3. HUMAN IMMUNOGLOBULIN G [Concomitant]
     Active Substance: HUMAN IMMUNOGLOBULIN G
     Indication: Therapeutic procedure
     Dosage: 10 G, QD
     Route: 041
     Dates: start: 20210607
  4. TOTAL GLUCOSIDES OF WHITE PAEONY [Concomitant]
     Indication: Therapeutic procedure
     Dosage: 0.6 G, 3X/DAY
     Route: 048
     Dates: start: 20210607
  5. CEFOPERAZONE SODIUM\SULBACTAM SODIUM [Concomitant]
     Active Substance: CEFOPERAZONE SODIUM\SULBACTAM SODIUM
     Indication: Anti-infective therapy
     Dosage: 3 G, 3X/DAY
     Route: 041
     Dates: start: 20210607
  6. METHYLPREDNISOLONE [Concomitant]
     Active Substance: METHYLPREDNISOLONE
     Indication: Antiinflammatory therapy
     Dosage: 16 MG, Q8H
     Route: 048
     Dates: start: 20210607
  7. CALCIUM CARBONATE\CHOLECALCIFEROL [Concomitant]
     Active Substance: CALCIUM CARBONATE\CHOLECALCIFEROL
     Indication: Osteoporosis prophylaxis
     Dosage: 600 MG, QD
     Route: 048
     Dates: start: 20210607
  8. OMEPRAZOLE MAGNESIUM [Concomitant]
     Active Substance: OMEPRAZOLE MAGNESIUM
     Indication: Prophylaxis
     Dosage: 20 MG, BID
     Route: 048
     Dates: start: 20210607
  9. NYSTATIN [Concomitant]
     Active Substance: NYSTATIN
     Indication: Fungal infection
     Dosage: 500000 IU, 4X/DAY

REACTIONS (3)
  - Neuropathy peripheral [Recovered/Resolved]
  - Hypoaesthesia oral [Recovered/Resolved]
  - Hypoaesthesia [Recovered/Resolved]

NARRATIVE: CASE EVENT DATE: 20210619
